FAERS Safety Report 7556244-3 (Version None)
Quarter: 2011Q2

REPORT INFORMATION
  Report Type: 
  Country: None (occurrence: None)
  Receive Date: 20110620
  Receipt Date: 20110614
  Transmission Date: 20111010
  Serious: No
  Sender: FDA-Public Use
  Company Number: US-PFIZER INC-2011131000

PATIENT
  Sex: Female
  Weight: 49.887 kg

DRUGS (2)
  1. PREDNISONE [Concomitant]
     Dosage: UNK
  2. VFEND [Suspect]
     Indication: SCEDOSPORIUM INFECTION
     Dosage: UNK
     Route: 042

REACTIONS (1)
  - DRUG INEFFECTIVE [None]
